FAERS Safety Report 7765825-3 (Version None)
Quarter: 2011Q3

REPORT INFORMATION
  Report Type: 
  Country: None (occurrence: None)
  Receive Date: 20110921
  Receipt Date: 20110617
  Transmission Date: 20111222
  Serious: No
  Sender: FDA-Public Use
  Company Number: US-BAYER-2011-053468

PATIENT
  Age: 72 Year
  Sex: Female
  Weight: 56.236 kg

DRUGS (2)
  1. ALEVE (CAPLET) [Suspect]
     Indication: ARTHRITIS
     Dosage: 1/2 TAB, TWICE DAILY
     Route: 048
     Dates: start: 20110616
  2. OSTEO BI-FLEX [Concomitant]

REACTIONS (5)
  - NERVOUSNESS [None]
  - EUPHORIC MOOD [None]
  - FATIGUE [None]
  - INSOMNIA [None]
  - FEELING JITTERY [None]
